FAERS Safety Report 9872136 (Version 1)
Quarter: 2014Q1

REPORT INFORMATION
  Report Type: Spontaneous
  Country: None (occurrence: US)
  Receive Date: 20140205
  Receipt Date: 20140205
  Transmission Date: 20141002
  Serious: No
  Sender: FDA-Public Use
  Company Number: US-ALLERGAN-1306751US

PATIENT
  Age: 50 Year
  Sex: Female

DRUGS (3)
  1. BOTOX [Suspect]
     Indication: HYPERHIDROSIS
     Dosage: UNK
     Dates: start: 20130404, end: 20130404
  2. SYNTHROID [Concomitant]
     Indication: HYPOTHYROIDISM
     Dosage: UNK
  3. MEDICATION NOS [Concomitant]
     Indication: BLOOD CHOLESTEROL INCREASED
     Dosage: UNK

REACTIONS (1)
  - Therapeutic response decreased [Unknown]
